FAERS Safety Report 14475450 (Version 3)
Quarter: 2018Q2

REPORT INFORMATION
  Report Type: Report from Study
  Country: GB (occurrence: GB)
  Receive Date: 20180201
  Receipt Date: 20180425
  Transmission Date: 20180711
  Serious: Yes (Hospitalization)
  Sender: FDA-Public Use
  Company Number: GB-VERTEX PHARMACEUTICALS-2018-000740

PATIENT
  Age: 14 Year
  Sex: Female
  Weight: 39.7 kg

DRUGS (13)
  1. ORKAMBI [Suspect]
     Active Substance: IVACAFTOR\LUMACAFTOR
     Indication: CYSTIC FIBROSIS
     Dosage: 2 TABLETS (200/125 MG), BID
     Route: 048
     Dates: start: 20180103
  2. TRANEXAMIC ACID. [Concomitant]
     Active Substance: TRANEXAMIC ACID
  3. VITAMIN K [Concomitant]
     Active Substance: PHYTONADIONE
  4. VITAMIN E                          /00110501/ [Concomitant]
     Active Substance: TOCOPHEROL
  5. SALBUTAMOL [Concomitant]
     Active Substance: ALBUTEROL
  6. DOXYCYCLINE. [Concomitant]
     Active Substance: DOXYCYCLINE
  7. LANTUS [Concomitant]
     Active Substance: INSULIN GLARGINE
  8. CREON [Concomitant]
     Active Substance: PANCRELIPASE AMYLASE\PANCRELIPASE LIPASE\PANCRELIPASE PROTEASE
  9. OMEPRAZOLE. [Concomitant]
     Active Substance: OMEPRAZOLE
  10. DORNASE ALFA. [Concomitant]
     Active Substance: DORNASE ALFA
  11. ALPHA-TOCOPHEROL [Concomitant]
     Active Substance: .ALPHA.-TOCOPHEROL
  12. VITAMIN D [Concomitant]
     Active Substance: CHOLECALCIFEROL
  13. URSODEOXYCHOLIC ACID [Concomitant]
     Active Substance: URSODIOL

REACTIONS (6)
  - Pyrexia [Recovered/Resolved]
  - Headache [Unknown]
  - Body temperature increased [Recovered/Resolved]
  - Back pain [Unknown]
  - Sputum increased [Not Recovered/Not Resolved]
  - Pulmonary function test decreased [Unknown]

NARRATIVE: CASE EVENT DATE: 201801
